FAERS Safety Report 13057257 (Version 1)
Quarter: 2016Q4

REPORT INFORMATION
  Report Type: Spontaneous
  Country: US (occurrence: US)
  Receive Date: 20161222
  Receipt Date: 20161222
  Transmission Date: 20170207
  Serious: No
  Sender: FDA-Public Use
  Company Number: None

PATIENT
  Age: 42 Year
  Sex: Female

DRUGS (1)
  1. DIPHENHYDRAMINE. [Suspect]
     Active Substance: DIPHENHYDRAMINE
     Indication: PREMEDICATION
     Dosage: 50MG PRIOR TO MED IV
     Route: 042
     Dates: start: 20161128, end: 20161128

REACTIONS (2)
  - Chills [None]
  - Sensory disturbance [None]

NARRATIVE: CASE EVENT DATE: 20161128
